FAERS Safety Report 24822563 (Version 2)
Quarter: 2025Q1

REPORT INFORMATION
  Report Type: Report from Study
  Country: US (occurrence: US)
  Receive Date: 20250109
  Receipt Date: 20250227
  Transmission Date: 20250409
  Serious: Yes (Hospitalization)
  Sender: BIOGEN
  Company Number: US-BIOGEN-2025BI01296045

PATIENT
  Age: 42 Year
  Sex: Female
  Weight: 122.4 kg

DRUGS (17)
  1. TYSABRI [Suspect]
     Active Substance: NATALIZUMAB
     Indication: Multiple sclerosis
     Route: 050
     Dates: start: 20120611, end: 20211022
  2. TYSABRI [Suspect]
     Active Substance: NATALIZUMAB
     Route: 050
     Dates: start: 20211206, end: 20241108
  3. bifidobacterium-lactobacillus [Concomitant]
     Indication: Product used for unknown indication
     Route: 050
  4. BUPROPION [Concomitant]
     Active Substance: BUPROPION
     Indication: Product used for unknown indication
     Route: 050
  5. CHOLECALCIFEROL [Concomitant]
     Active Substance: CHOLECALCIFEROL
     Indication: Product used for unknown indication
     Route: 050
  6. digestive enzymes, hyoscyamine, phenyltoloxamin [Concomitant]
     Indication: Product used for unknown indication
     Route: 050
  7. MAGNESIUM SULFATE [Concomitant]
     Active Substance: MAGNESIUM SULFATE
     Indication: Product used for unknown indication
     Route: 050
  8. Biotoxin binder [Concomitant]
     Indication: Product used for unknown indication
     Route: 050
  9. Monolaurin [Concomitant]
     Indication: Product used for unknown indication
     Route: 050
  10. B2 folate [Concomitant]
     Indication: Product used for unknown indication
     Route: 050
  11. K2-7 + vitamin D3 [Concomitant]
     Indication: Product used for unknown indication
     Route: 050
  12. PROGESTERONE [Concomitant]
     Active Substance: PROGESTERONE
     Indication: Product used for unknown indication
     Route: 050
  13. thyroid dessicated [Concomitant]
     Indication: Product used for unknown indication
     Route: 050
  14. ZINC CITRATE [Concomitant]
     Active Substance: ZINC CITRATE
     Indication: Product used for unknown indication
     Route: 050
  15. Dulcolax [Concomitant]
     Indication: Laxative supportive care
     Route: 050
  16. PEG 3350 with electrolytes [Concomitant]
     Indication: Product used for unknown indication
     Route: 050
  17. REGLAN [Concomitant]
     Active Substance: METOCLOPRAMIDE HYDROCHLORIDE
     Indication: Product used for unknown indication
     Route: 050

REACTIONS (4)
  - Chronic lymphocytic leukaemia [Not Recovered/Not Resolved]
  - Haemolytic anaemia [Not Recovered/Not Resolved]
  - Hepatic steatosis [Unknown]
  - Cholelithiasis [Unknown]

NARRATIVE: CASE EVENT DATE: 20241114
